FAERS Safety Report 21177914 (Version 1)
Quarter: 2022Q3

REPORT INFORMATION
  Report Type: Other
  Country: None (occurrence: PL)
  Receive Date: 20220805
  Receipt Date: 20220805
  Transmission Date: 20221027
  Serious: Yes (Life-Threatening, Hospitalization, Other)
  Sender: FDA-Public Use
  Company Number: PL-B.Braun Medical Inc.-2131547

PATIENT
  Age: 39 Year
  Sex: Female

DRUGS (5)
  1. LIDOCAINE HYDROCHLORIDE AND DEXTROSE [Suspect]
     Active Substance: DEXTROSE\LIDOCAINE HYDROCHLORIDE
  2. AMIODARONE HYDROCHLORIDE [Suspect]
     Active Substance: AMIODARONE HYDROCHLORIDE
  3. METOPROLOL [Suspect]
     Active Substance: METOPROLOL
  4. MAGNESIUM SULFATE [Suspect]
     Active Substance: MAGNESIUM SULFATE
  5. ADENOSINE [Suspect]
     Active Substance: ADENOSINE

REACTIONS (1)
  - Drug ineffective [Unknown]
